FAERS Safety Report 5885532-1 (Version None)
Quarter: 2008Q3

REPORT INFORMATION
  Report Type: 
  Country: None (occurrence: None)
  Receive Date: 20080916
  Receipt Date: 20080911
  Transmission Date: 20090109
  Serious: Yes (Hospitalization)
  Sender: FDA-Public Use
  Company Number: HQWYE720118AUG06

PATIENT
  Sex: Male

DRUGS (15)
  1. SIROLIMUS [Suspect]
     Indication: PROPHYLAXIS AGAINST TRANSPLANT REJECTION
     Dosage: 2 MG QOD ALTERNATING WITH 3 MG QOD
     Route: 048
     Dates: start: 20050601, end: 20060801
  2. SIROLIMUS [Suspect]
     Route: 048
     Dates: start: 20060801
  3. SYNTHROID [Concomitant]
     Dosage: UNSPECIFIED
     Dates: start: 20040210
  4. LEXAPRO [Concomitant]
     Dosage: UNSPECIFIED
     Dates: start: 20051020
  5. ZYPREXA [Concomitant]
     Dosage: UNSPECIFIED
     Dates: start: 20050501
  6. FOSAMAX [Concomitant]
     Dosage: UNSPECIFIED
     Dates: start: 20040329
  7. PREDNISONE TAB [Concomitant]
     Indication: PROPHYLAXIS AGAINST TRANSPLANT REJECTION
     Dates: start: 20051109, end: 20060228
  8. PREDNISONE TAB [Concomitant]
     Dates: start: 20060301
  9. INSULIN INSULATARD NPH NORDISK [Concomitant]
     Dosage: UNSPECIFIED
     Dates: start: 20060510
  10. INSULIN [Concomitant]
     Dosage: UNSPECIFIED
     Dates: start: 20060510
  11. LOVASTATIN [Concomitant]
     Indication: HYPERLIPIDAEMIA
     Dosage: UNSPECIFIED
     Dates: start: 20060510
  12. NICOTINIC ACID [Concomitant]
     Indication: HYPERLIPIDAEMIA
     Dosage: UNSPECIFIED
     Dates: start: 20060510
  13. ZETIA [Concomitant]
     Indication: HYPERLIPIDAEMIA
     Dosage: UNSPECIFIED
     Dates: start: 20060403
  14. LISINOPRIL [Concomitant]
     Route: 048
     Dates: start: 20060721, end: 20060809
  15. RESTORIL [Concomitant]
     Dosage: UNSPECIFIED
     Dates: start: 20051115

REACTIONS (2)
  - MYCOBACTERIUM AVIUM COMPLEX INFECTION [None]
  - RENAL FAILURE ACUTE [None]
